FAERS Safety Report 9740410 (Version 1)
Quarter: 2013Q4

REPORT INFORMATION
  Report Type: Report from Study
  Country: US (occurrence: US)
  Receive Date: 20131209
  Receipt Date: 20131209
  Transmission Date: 20140711
  Serious: Yes (Hospitalization)
  Sender: FDA-Public Use
  Company Number: US-BAXTER-2013BAX048440

PATIENT
  Age: 60 Year
  Sex: Male
  Weight: 82.4 kg

DRUGS (3)
  1. CYTOXAN TABLETS (CYCLOPHOSPHAMIDE TABLETS, USP) [Suspect]
     Indication: PLASMA CELL MYELOMA
     Route: 048
     Dates: start: 20130607, end: 20130712
  2. VELCADE [Suspect]
     Indication: PLASMA CELL MYELOMA
     Route: 058
     Dates: start: 20130607, end: 20130712
  3. DECADRON [Suspect]
     Indication: PLASMA CELL MYELOMA
     Route: 048
     Dates: start: 20130607, end: 20130712

REACTIONS (1)
  - Diverticular perforation [Recovered/Resolved]
